FAERS Safety Report 8553843-7 (Version None)
Quarter: 2012Q3

REPORT INFORMATION
  Report Type: 
  Country: None (occurrence: None)
  Receive Date: 20120725
  Receipt Date: 20120725
  Transmission Date: 20120928
  Serious: Yes (Disabling)
  Sender: FDA-Public Use
  Company Number: None

PATIENT
  Sex: Male

DRUGS (2)
  1. FLOMAX [Suspect]
     Indication: PROSTATOMEGALY
     Dosage: 4 MG, ONE A NIGHT, PO
     Route: 048
     Dates: start: 20120612, end: 20120619
  2. FLOMAX [Suspect]
     Indication: URINARY RETENTION
     Dosage: 4 MG, ONE A NIGHT, PO
     Route: 048
     Dates: start: 20120612, end: 20120619

REACTIONS (1)
  - PANIC ATTACK [None]
